FAERS Safety Report 5844900-4 (Version None)
Quarter: 2008Q3

REPORT INFORMATION
  Report Type: 
  Country: None (occurrence: None)
  Receive Date: 20080814
  Receipt Date: 20080714
  Transmission Date: 20090109
  Serious: No
  Sender: FDA-Public Use
  Company Number: US-BAYER-200829190NA

PATIENT

DRUGS (1)
  1. AVELOX [Suspect]
     Indication: PNEUMONIA
     Route: 042
     Dates: start: 20080713

REACTIONS (3)
  - INFUSION SITE EXTRAVASATION [None]
  - VENIPUNCTURE SITE SWELLING [None]
  - VESSEL PUNCTURE SITE REACTION [None]
